FAERS Safety Report 20885168 (Version 2)
Quarter: 2022Q2

REPORT INFORMATION
  Report Type: Spontaneous
  Country: US (occurrence: US)
  Receive Date: 20220527
  Receipt Date: 20220622
  Transmission Date: 20220720
  Serious: No
  Sender: FDA-Public Use
  Company Number: US-BRISTOL-MYERS SQUIBB COMPANY-2022-046244

PATIENT
  Age: 72 Year
  Sex: Male

DRUGS (1)
  1. REVLIMID [Suspect]
     Active Substance: LENALIDOMIDE
     Indication: Product used for unknown indication
     Route: 048
     Dates: start: 202205

REACTIONS (8)
  - Lip swelling [Unknown]
  - Diarrhoea [Unknown]
  - Gingival pain [Unknown]
  - Gingival swelling [Unknown]
  - Lip pain [Unknown]
  - Toothache [Unknown]
  - Lip ulceration [Unknown]
  - Mouth ulceration [Unknown]

NARRATIVE: CASE EVENT DATE: 20220523
